FAERS Safety Report 23455339 (Version 1)
Quarter: 2024Q1

REPORT INFORMATION
  Report Type: Spontaneous
  Country: FR (occurrence: None)
  Receive Date: 20240130
  Receipt Date: 20240130
  Transmission Date: 20240410
  Serious: Yes (Other)
  Sender: FDA-Public Use
  Company Number: FR-ROCHE-3477891

PATIENT
  Sex: Male

DRUGS (1)
  1. COTELLIC [Suspect]
     Active Substance: COBIMETINIB
     Indication: Histiocytosis
     Dosage: THE DOSAGE IS 2 TABLETS PER DAY
     Route: 065

REACTIONS (3)
  - Rhabdomyolysis [Recovering/Resolving]
  - Skin ulcer [Recovering/Resolving]
  - Off label use [Unknown]
